FAERS Safety Report 7486644-1 (Version None)
Quarter: 2011Q2

REPORT INFORMATION
  Report Type: 
  Country: None (occurrence: None)
  Receive Date: 20110517
  Receipt Date: 20110505
  Transmission Date: 20111010
  Serious: Yes (Hospitalization)
  Sender: FDA-Public Use
  Company Number: DE-ELI_LILLY_AND_COMPANY-DE201105003881

PATIENT
  Sex: Female

DRUGS (4)
  1. LYRICA [Concomitant]
  2. CALCIUM [Concomitant]
  3. RALOXIFENE HYDROCHLORIDE [Suspect]
     Indication: OSTEOPOROSIS
     Dosage: 60 MG, UNK
     Route: 048
     Dates: start: 20020301, end: 20110301
  4. VITAMIN D [Concomitant]

REACTIONS (1)
  - POLYNEUROPATHY [None]
